FAERS Safety Report 7830082-6 (Version None)
Quarter: 2011Q4

REPORT INFORMATION
  Report Type: 
  Country: None (occurrence: None)
  Receive Date: 20111021
  Receipt Date: 20111012
  Transmission Date: 20120403
  Serious: Yes (Other)
  Sender: FDA-Public Use
  Company Number: US-US-EMD SERONO, INC.-7089437

PATIENT
  Sex: Female

DRUGS (1)
  1. REBIF [Suspect]
     Indication: MULTIPLE SCLEROSIS
     Route: 058
     Dates: start: 20080411

REACTIONS (10)
  - CONVULSION [None]
  - GASTRITIS HAEMORRHAGIC [None]
  - NEUROPATHY PERIPHERAL [None]
  - EROSIVE OESOPHAGITIS [None]
  - ORAL CANDIDIASIS [None]
  - FUNGAL INFECTION [None]
  - URINARY TRACT INFECTION [None]
  - HELICOBACTER TEST POSITIVE [None]
  - HYPERTENSION [None]
  - HAEMORRHOIDS [None]
